FAERS Safety Report 17533959 (Version 4)
Quarter: 2021Q2

REPORT INFORMATION
  Report Type: Report from Study
  Country: US (occurrence: US)
  Receive Date: 20200312
  Receipt Date: 20210503
  Transmission Date: 20210716
  Serious: Yes (Hospitalization)
  Sender: FDA-Public Use
  Company Number: US-PFIZER INC-2020063644

PATIENT
  Age: 54 Year
  Sex: Female
  Weight: 79.5 kg

DRUGS (24)
  1. ERDAFITINIB. [Suspect]
     Active Substance: ERDAFITINIB
     Indication: BREAST CANCER
     Dosage: 5 MG, DAILY
     Route: 048
     Dates: start: 20190926, end: 20200204
  2. TYLENOL WITH CODEINE [Concomitant]
     Active Substance: ACETAMINOPHEN\CODEINE PHOSPHATE
     Indication: PAIN
     Dosage: [CODEINE PHOSPHATE 30 MG]/[PARACETAMOL 300 MG], Q6HR PRN
     Route: 048
     Dates: start: 20190926
  3. PALBOCICLIB [Suspect]
     Active Substance: PALBOCICLIB
     Indication: BREAST CANCER
     Dosage: 125 MG, DAILY
     Route: 048
     Dates: start: 20190926, end: 20200204
  4. VITAMIN B?6 [Concomitant]
     Active Substance: PYRIDOXINE
     Indication: PROPHYLAXIS
     Dosage: 100 MG, DAILY
     Route: 048
     Dates: start: 20190926
  5. DEXILANT [Concomitant]
     Active Substance: DEXLANSOPRAZOLE
     Indication: REFLUX GASTRITIS
     Dosage: 60 MG, AS NEEDED
     Route: 048
     Dates: start: 20191112
  6. CITRACAL + D [CALCIUM CITRATE;ERGOCALCIFEROL] [Concomitant]
     Indication: PROPHYLAXIS
     Dosage: [CALCIUM CITRATE 315 MG]/[ERGOCALCIFEROL 200 MG], 2X/DAY
     Route: 048
     Dates: start: 20130101
  7. VITAMIN B12 [Concomitant]
     Active Substance: CYANOCOBALAMIN
     Indication: NUTRITIONAL SUPPLEMENTATION
     Dosage: 5000 UG, 4X/DAY
     Route: 048
     Dates: start: 20171025
  8. MELATONIN [Concomitant]
     Active Substance: MELATONIN
     Indication: INSOMNIA
     Dosage: 3 MG, 4X/DAY (QID PRN)
     Route: 048
     Dates: start: 20171201
  9. LIDEX [Concomitant]
     Active Substance: FLUOCINONIDE
     Indication: PALMAR-PLANTAR ERYTHRODYSAESTHESIA SYNDROME
     Dosage: 1 OTHER(UNIT), AS NEEDED
     Route: 061
     Dates: start: 20190328, end: 20200115
  10. ANALPRAM?HC [Concomitant]
     Indication: HAEMORRHOIDS
     Dosage: [HYDROCORTISONE ACETATE 2.5%]/[PRAMOCAINE HYDROCHLORIDE 1%], 1 OTHER (UNIT), PER RECTUM, AS NEEDED
     Route: 054
     Dates: start: 20191015
  11. PYRIDIUM [Concomitant]
     Active Substance: PHENAZOPYRIDINE
     Indication: URINARY TRACT PAIN
  12. PYRIDIUM [Concomitant]
     Active Substance: PHENAZOPYRIDINE
     Indication: HAEMATURIA
     Dosage: 100 MG, 2X/DAY
     Route: 048
     Dates: start: 20191113, end: 20200118
  13. EMLA [Concomitant]
     Active Substance: LIDOCAINE\PRILOCAINE
     Indication: PAIN
     Dosage: 1 UNIT, AS NEEDED (PRN)
     Route: 061
     Dates: start: 20170811, end: 20200219
  14. FISH OIL\OMEGA?3 FATTY ACIDS [Concomitant]
     Active Substance: FISH OIL\OMEGA-3 FATTY ACIDS
     Indication: GENERAL PHYSICAL HEALTH DETERIORATION
     Dosage: 1000 MG, [FISH OIL 1000 MG]/[OMEGA?3 FATTY ACIDS 300 MG], 4X/DAY
     Route: 048
     Dates: start: 20161219
  15. SEVELAMER [Concomitant]
     Active Substance: SEVELAMER
     Indication: HYPERPHOSPHATAEMIA
     Dosage: 800 MG, 3X/DAY
     Route: 048
     Dates: start: 20191003, end: 20200207
  16. BACTROBAN [Concomitant]
     Active Substance: MUPIROCIN\MUPIROCIN CALCIUM
     Indication: NASAL DRYNESS
     Dosage: 1 OTHER (UNIT), AS NEEDED
     Route: 061
     Dates: start: 20191021, end: 20200115
  17. XANAX [Concomitant]
     Active Substance: ALPRAZOLAM
     Indication: ANXIETY
     Dosage: 0.25 MG, 2X/DAY (BID PRN)
     Route: 048
     Dates: start: 20180419
  18. FLEXERIL [Concomitant]
     Active Substance: CYCLOBENZAPRINE HYDROCHLORIDE
     Indication: MUSCLE SPASMS
     Dosage: 5 MG, 4X/DAY (QID PRN)
     Route: 048
     Dates: start: 20180808
  19. MAG?OX [Concomitant]
     Active Substance: MAGNESIUM OXIDE
     Indication: NUTRITIONAL SUPPLEMENTATION
     Dosage: 400 MG, 4X/DAY
     Route: 048
     Dates: start: 20160101
  20. NAPROSYN [Concomitant]
     Active Substance: NAPROXEN
     Indication: PAIN
     Dosage: 375 MG, AS NEEDED
     Route: 048
     Dates: start: 20180801, end: 20200115
  21. FULVESTRANT. [Suspect]
     Active Substance: FULVESTRANT
     Indication: BREAST CANCER METASTATIC
     Dosage: 500 MG, MONTHLY
     Route: 058
     Dates: start: 20190926, end: 20200204
  22. DEXAMETHASONE. [Concomitant]
     Active Substance: DEXAMETHASONE
     Indication: PROPHYLAXIS
     Dosage: 1 MG/ML, 4X/DAY, DEXAMETHASONE 0.5/5
     Route: 048
     Dates: start: 20190926
  23. VITAMIN B?6 [Concomitant]
     Active Substance: PYRIDOXINE
     Indication: DRY SKIN
  24. RITALIN [Concomitant]
     Active Substance: METHYLPHENIDATE HYDROCHLORIDE
     Indication: FATIGUE
     Dosage: 5 MG, DAILY
     Route: 048
     Dates: start: 20190926

REACTIONS (2)
  - Hypotension [Recovered/Resolved]
  - Colitis [Recovered/Resolved]

NARRATIVE: CASE EVENT DATE: 20200207
